FAERS Safety Report 5202511-8 (Version None)
Quarter: 2006Q4

REPORT INFORMATION
  Report Type: 
  Country: None (occurrence: None)
  Receive Date: 20061017
  Receipt Date: 20051201
  Transmission Date: 20070319
  Serious: Yes (Other)
  Sender: FDA-Public Use
  Company Number: PHEH2005US10702

PATIENT
  Age: 73 Year
  Sex: Male

DRUGS (2)
  1. MIACALCIN [Suspect]
     Indication: OSTEOPOROSIS
     Dosage: 200IU, QD, NASAL
     Route: 045
     Dates: start: 20050201, end: 20050923
  2. ZOLOFT [Concomitant]

REACTIONS (5)
  - DIZZINESS [None]
  - DYSPNOEA [None]
  - FLUSHING [None]
  - MUSCULAR WEAKNESS [None]
  - THROAT TIGHTNESS [None]
